FAERS Safety Report 17257462 (Version 1)
Quarter: 2019Q4

REPORT INFORMATION
  Report Type: Spontaneous
  Country: US (occurrence: US)
  Receive Date: 20191217
  Receipt Date: 20191217
  Transmission Date: 20200122
  Serious: Yes (Life-Threatening)
  Sender: FDA-Public Use
  Company Number: None

PATIENT
  Age: 59 Year
  Sex: Female

DRUGS (8)
  1. GLATIRAMER 40MG/ML SYRINGE [Suspect]
     Active Substance: GLATIRAMER
     Indication: MULTIPLE SCLEROSIS
     Route: 058
     Dates: start: 20180328
  2. VITAMIN B [Concomitant]
     Active Substance: VITAMIN B
  3. COPAXONE [Concomitant]
     Active Substance: GLATIRAMER ACETATE
  4. AMBIEN [Concomitant]
     Active Substance: ZOLPIDEM TARTRATE
  5. VITAMIN D [Concomitant]
     Active Substance: VITAMIN D NOS
  6. TRENTELLIX [Concomitant]
  7. LYRICA [Concomitant]
     Active Substance: PREGABALIN
  8. ADDERALL XR [Concomitant]
     Active Substance: AMPHETAMINE ASPARTATE\AMPHETAMINE SULFATE\DEXTROAMPHETAMINE SACCHARATE\DEXTROAMPHETAMINE SULFATE

REACTIONS (1)
  - Fall [None]

NARRATIVE: CASE EVENT DATE: 20191216
